FAERS Safety Report 11492298 (Version 5)
Quarter: 2016Q1

REPORT INFORMATION
  Report Type: Report from Study
  Country: US (occurrence: US)
  Receive Date: 20150910
  Receipt Date: 20160209
  Transmission Date: 20160525
  Serious: No
  Sender: FDA-Public Use
  Company Number: PHEH2015US014046

PATIENT
  Age: 32 Year
  Sex: Female
  Weight: 73.47 kg

DRUGS (6)
  1. PRENATAL [Concomitant]
     Active Substance: VITAMINS
     Indication: PRODUCT USED FOR UNKNOWN INDICATION
     Dosage: UNK
     Route: 065
  2. VITAMIN D [Concomitant]
     Active Substance: CHOLECALCIFEROL
     Indication: VITAMIN D DEFICIENCY
  3. CALCIUM [Concomitant]
     Active Substance: CALCIUM
     Indication: PRODUCT USED FOR UNKNOWN INDICATION
     Dosage: 1000 MG, UNK
     Route: 065
  4. VITAMIN D3 [Concomitant]
     Active Substance: CHOLECALCIFEROL
     Indication: SUPPLEMENTATION THERAPY
     Dosage: 5000 U, QD
     Route: 065
  5. GILENYA [Suspect]
     Active Substance: FINGOLIMOD HYDROCHLORIDE
     Indication: RELAPSING-REMITTING MULTIPLE SCLEROSIS
     Dosage: 0.5 MG, QD
     Route: 048
     Dates: start: 201411
  6. VITAMIN D [Concomitant]
     Active Substance: CHOLECALCIFEROL
     Indication: SUPPLEMENTATION THERAPY
     Dosage: 5000 U, QD
     Route: 065

REACTIONS (17)
  - Dyskinesia [Unknown]
  - Blood pressure decreased [Unknown]
  - Micturition urgency [Unknown]
  - Photophobia [Unknown]
  - Maternal exposure during pregnancy [Not Recovered/Not Resolved]
  - Limb discomfort [Unknown]
  - Urinary hesitation [Unknown]
  - Nausea [Unknown]
  - Cough [Recovered/Resolved]
  - Abdominal pain upper [Unknown]
  - Feeling abnormal [Unknown]
  - Stress urinary incontinence [Unknown]
  - Temperature intolerance [Unknown]
  - Headache [Unknown]
  - Gait spastic [Unknown]
  - Decreased vibratory sense [Unknown]
  - Stress [Unknown]

NARRATIVE: CASE EVENT DATE: 201504
